FAERS Safety Report 7209870-5 (Version None)
Quarter: 2011Q1

REPORT INFORMATION
  Report Type: 
  Country: None (occurrence: None)
  Receive Date: 20110104
  Receipt Date: 20101231
  Transmission Date: 20110831
  Serious: Yes (Other)
  Sender: FDA-Public Use
  Company Number: FI-BRISTOL-MYERS SQUIBB COMPANY-15468713

PATIENT
  Age: 44 Year
  Sex: Male

DRUGS (1)
  1. ARIPIPRAZOLE [Suspect]
     Dosage: RESTARTED WITH 2.5 MG AND STOPPED AGAIN.

REACTIONS (1)
  - HYPOMANIA [None]
